FAERS Safety Report 8925222 (Version 3)
Quarter: 2013Q2

REPORT INFORMATION
  Report Type: Spontaneous
  Country: US (occurrence: US)
  Receive Date: 20121126
  Receipt Date: 20130614
  Transmission Date: 20140414
  Serious: Yes (Hospitalization, Disabling)
  Sender: FDA-Public Use
  Company Number: US-BAYER-2012-120796

PATIENT
  Age: 27 Year
  Sex: Female
  Weight: 99.77 kg

DRUGS (4)
  1. YASMIN [Suspect]
     Indication: PREMENSTRUAL SYNDROME
     Dosage: UNK
     Dates: start: 20090203, end: 20100820
  2. METRONIDAZOLE [Concomitant]
     Dosage: 0.75 %, UNK
     Dates: start: 20100601
  3. PERCOCET [Concomitant]
  4. ENDOCET [Concomitant]
     Dosage: 5-325MG

REACTIONS (8)
  - Deep vein thrombosis [None]
  - Pain [None]
  - Injury [None]
  - General physical health deterioration [None]
  - Anxiety [None]
  - Emotional distress [None]
  - Pain [None]
  - Off label use [None]
